FAERS Safety Report 5705479-0 (Version None)
Quarter: 2008Q2

REPORT INFORMATION
  Report Type: 
  Country: None (occurrence: None)
  Receive Date: 20080411
  Receipt Date: 20080328
  Transmission Date: 20081010
  Serious: Yes (Hospitalization, Congenital Anomaly)
  Sender: FDA-Public Use
  Company Number: 6041870

PATIENT
  Age: 40 Year
  Sex: Female

DRUGS (2)
  1. LODOZ (HYDROCHLOROTHIAZIDE, BISOPROLOL FUMARATE) [Suspect]
     Indication: HYPERTENSION
  2. ALTEIS (40 MG, TABLET) (OLMESARTAN MEDOXOMIL) [Suspect]
     Indication: HYPERTENSION

REACTIONS (4)
  - DRUG EXPOSURE DURING PREGNANCY [None]
  - FOETAL GROWTH RETARDATION [None]
  - MULTIPLE CONGENITAL ABNORMALITIES [None]
  - OLIGOHYDRAMNIOS [None]
